FAERS Safety Report 16455720 (Version 2)
Quarter: 2019Q2

REPORT INFORMATION
  Report Type: Spontaneous
  Country: JP (occurrence: JP)
  Receive Date: 20190619
  Receipt Date: 20190626
  Transmission Date: 20190711
  Serious: Yes (Hospitalization)
  Sender: FDA-Public Use
  Company Number: PHJP2019JP006872

PATIENT
  Age: 74 Year
  Sex: Female

DRUGS (6)
  1. SELEGILIN [Concomitant]
     Active Substance: SELEGILINE
     Indication: FREEZING PHENOMENON
     Dosage: 2.5 MG, QD (AFTER BREAKFAST)
     Route: 048
  2. CARBIDOPA LEVODOPA [Suspect]
     Active Substance: CARBIDOPA\LEVODOPA
     Indication: PARKINSON^S DISEASE
     Dosage: 100 MG, 10QD
     Route: 048
  3. ROPINIROLE HYDROCHLORIDE. [Suspect]
     Active Substance: ROPINIROLE HYDROCHLORIDE
     Indication: PARKINSON^S DISEASE
     Dosage: 6 MG, QD (AFTER BREAKFAST)
     Route: 048
  4. SELEGILIN [Concomitant]
     Active Substance: SELEGILINE
     Dosage: 5.0 MG, QD (AFTER BREAKFAST)
     Route: 048
  5. COMTAN [Suspect]
     Active Substance: ENTACAPONE
     Indication: PARKINSON^S DISEASE
     Dosage: 100 MG, BID (10 AND 14 O^CLOCK)
     Route: 048
  6. CARBIDOPA LEVODOPA [Suspect]
     Active Substance: CARBIDOPA\LEVODOPA
     Dosage: 800 MG, QD
     Route: 048

REACTIONS (3)
  - Dyskinesia [Recovering/Resolving]
  - Therapeutic response shortened [Unknown]
  - Parkinsonian gait [Unknown]
